FAERS Safety Report 26210404 (Version 1)
Quarter: 2025Q4

REPORT INFORMATION
  Report Type: Spontaneous
  Country: EU (occurrence: EU)
  Receive Date: 20251229
  Receipt Date: 20251229
  Transmission Date: 20260117
  Serious: Yes (Other)
  Sender: BOEHRINGER INGELHEIM
  Company Number: EU-BoehringerIngelheim-2025-BI-116735

PATIENT
  Age: 74 Year
  Sex: Male
  Weight: 77 kg

DRUGS (3)
  1. OFEV [Suspect]
     Active Substance: NINTEDANIB
     Indication: Idiopathic pulmonary fibrosis
  2. OFEV [Suspect]
     Active Substance: NINTEDANIB
     Indication: Pulmonary fibrosis
  3. BMS-986278 [Concomitant]
     Active Substance: BMS-986278
     Indication: Product used for unknown indication

REACTIONS (7)
  - Idiopathic pulmonary fibrosis [Unknown]
  - Idiopathic pulmonary fibrosis [Unknown]
  - Idiopathic pulmonary fibrosis [Unknown]
  - Cystitis [Unknown]
  - Urinary tract infection [Unknown]
  - Haematuria [Unknown]
  - Lower urinary tract symptoms [Unknown]

NARRATIVE: CASE EVENT DATE: 20210101
